FAERS Safety Report 9133070 (Version 1)
Quarter: 2013Q1

REPORT INFORMATION
  Report Type: Spontaneous
  Country: US (occurrence: US)
  Receive Date: 20130128
  Receipt Date: 20130128
  Transmission Date: 20140127
  Serious: Yes (Other)
  Sender: FDA-Public Use
  Company Number: US-PFIZER INC-2013029550

PATIENT
  Age: 76 Year
  Sex: Female
  Weight: 117.91 kg

DRUGS (5)
  1. VORICONAZOLE [Suspect]
     Indication: BACTERIAL INFECTION
     Dosage: 200 MG, 2X/DAY
     Route: 048
     Dates: start: 201212, end: 201301
  2. VORICONAZOLE [Suspect]
     Indication: FUNGAL INFECTION
  3. PREDNISONE [Concomitant]
     Indication: ARTHRITIS
     Dosage: UNK
  4. LASIX [Concomitant]
     Indication: FLUID RETENTION
     Dosage: UNK
  5. POTASSIUM [Concomitant]
     Dosage: UNK

REACTIONS (3)
  - Hallucination [Not Recovered/Not Resolved]
  - Visual impairment [Not Recovered/Not Resolved]
  - Skin discolouration [Not Recovered/Not Resolved]
